FAERS Safety Report 6179974-7 (Version None)
Quarter: 2009Q2

REPORT INFORMATION
  Report Type: 
  Country: None (occurrence: None)
  Receive Date: 20090505
  Receipt Date: 20090424
  Transmission Date: 20091009
  Serious: Yes (Hospitalization, Other)
  Sender: FDA-Public Use
  Company Number: US-CELGENEUS-163-20785-09031711

PATIENT
  Sex: Male

DRUGS (2)
  1. THALOMID [Suspect]
     Indication: MULTIPLE MYELOMA
     Route: 048
     Dates: start: 20090301, end: 20090301
  2. THALOMID [Suspect]
     Route: 048
     Dates: start: 20090301

REACTIONS (2)
  - GENERAL PHYSICAL CONDITION ABNORMAL [None]
  - OESOPHAGEAL CANDIDIASIS [None]
